FAERS Safety Report 5017107-0 (Version None)
Quarter: 2006Q2

REPORT INFORMATION
  Report Type: 
  Country: None (occurrence: None)
  Receive Date: 20060414
  Receipt Date: 20060309
  Transmission Date: 20061013
  Serious: No
  Sender: FDA-Public Use
  Company Number: 2006SP001151

PATIENT
  Age: 53 Year
  Sex: Female
  Weight: 49.8957 kg

DRUGS (5)
  1. LUNESTA [Suspect]
     Indication: INSOMNIA
     Dosage: 3 MG;HS;ORAL
     Route: 048
     Dates: start: 20050101
  2. SEROQUEL [Concomitant]
  3. LAMOTRIGINE [Concomitant]
  4. PAXIL [Concomitant]
  5. ASACOL [Concomitant]

REACTIONS (4)
  - AGEUSIA [None]
  - DYSGEUSIA [None]
  - HYPOAESTHESIA ORAL [None]
  - PAROSMIA [None]
